FAERS Safety Report 6456304-4 (Version None)
Quarter: 2009Q4

REPORT INFORMATION
  Report Type: 
  Country: None (occurrence: None)
  Receive Date: 20091120
  Receipt Date: 20091110
  Transmission Date: 20100525
  Serious: Yes (Death, Hospitalization)
  Sender: FDA-Public Use
  Company Number: 2009-03695

PATIENT
  Age: 6 Year
  Sex: Male
  Weight: 22.7 kg

DRUGS (19)
  1. VELCADE [Suspect]
     Indication: ACUTE MYELOID LEUKAEMIA
     Dosage: 1.3 MG/MG, IV BOLUS
     Route: 040
     Dates: start: 20090806, end: 20090814
  2. IDARUBICIN HCL [Suspect]
     Indication: ACUTE MYELOID LEUKAEMIA
     Dosage: 12 MG/M2, INTRAVENOUS
     Route: 042
     Dates: start: 20090806, end: 20090809
  3. CYTARABINE [Suspect]
     Indication: ACUTE MYELOID LEUKAEMIA
     Dosage: 70 MG/KG, INTRATHECAL,
     Route: 037
     Dates: start: 20090806, end: 20090806
  4. AMBISOME [Concomitant]
  5. CEFEPIME [Concomitant]
  6. DAPTOMYCIN [Concomitant]
  7. DIURIL (CHLOROTHIAZIDE) [Concomitant]
  8. DOBUTAMINE (DOBUTAMINE) [Concomitant]
  9. DOPAMINE HCL [Concomitant]
  10. FLAGYL [Concomitant]
  11. GENTAMICIN [Concomitant]
  12. POTASSIUM CHLORIDE [Concomitant]
  13. LASIX [Concomitant]
  14. MEROPENEM [Concomitant]
  15. MILRINONE LACTATE [Concomitant]
  16. RIFAMPIN [Concomitant]
  17. SYNTHROID [Concomitant]
  18. TIGECYCLINE [Concomitant]
  19. CYTARABINE [Suspect]
     Dosage: 100 MG/M2 , INTRAVENOUS
     Route: 042
     Dates: end: 20090813

REACTIONS (7)
  - CARDIOMYOPATHY [None]
  - COR PULMONALE [None]
  - EJECTION FRACTION DECREASED [None]
  - ENTEROCOCCAL SEPSIS [None]
  - LEFT VENTRICULAR DYSFUNCTION [None]
  - MYOCARDITIS [None]
  - RESPIRATORY RATE INCREASED [None]
